FAERS Safety Report 13984211 (Version 3)
Quarter: 2018Q4

REPORT INFORMATION
  Report Type: Spontaneous
  Country: JP (occurrence: JP)
  Receive Date: 20170918
  Receipt Date: 20181220
  Transmission Date: 20190204
  Serious: Yes (Other)
  Sender: FDA-Public Use
  Company Number: JP-ASTRAZENECA-2016SE75156

PATIENT
  Sex: Male

DRUGS (2)
  1. NEXIUM [Suspect]
     Active Substance: ESOMEPRAZOLE MAGNESIUM
     Indication: GASTRIC ULCER
     Route: 048
  2. IRESSA [Interacting]
     Active Substance: GEFITINIB
     Indication: LUNG NEOPLASM MALIGNANT
     Route: 048
     Dates: start: 2015

REACTIONS (18)
  - Peripheral swelling [Unknown]
  - Dyspepsia [Unknown]
  - Tumour marker increased [Unknown]
  - Metastases to pleura [Unknown]
  - Musculoskeletal stiffness [Unknown]
  - Nail disorder [Unknown]
  - Inhibitory drug interaction [Unknown]
  - Pruritus [Unknown]
  - Papule [Unknown]
  - Product prescribing error [Unknown]
  - Rash [Unknown]
  - Dry skin [Unknown]
  - Anaemia [Unknown]
  - Pain in extremity [Unknown]
  - Paraesthesia [Unknown]
  - Induration [Unknown]
  - Acne [Unknown]
  - Drug ineffective [Unknown]
